FAERS Safety Report 14803777 (Version 1)
Quarter: 2018Q2

REPORT INFORMATION
  Report Type: Spontaneous
  Country: US (occurrence: US)
  Receive Date: 20180425
  Receipt Date: 20180425
  Transmission Date: 20180711
  Serious: Yes (Other)
  Sender: FDA-Public Use
  Company Number: US-BRISTOL-MYERS SQUIBB COMPANY-BMS-2018-036213

PATIENT
  Age: 94 Year
  Sex: Male

DRUGS (1)
  1. OPDIVO [Suspect]
     Active Substance: NIVOLUMAB
     Indication: NEOPLASM MALIGNANT
     Dosage: UNAVAILABLE
     Route: 065
     Dates: start: 201706

REACTIONS (3)
  - Drug ineffective [Unknown]
  - Metastases to liver [Unknown]
  - Product use in unapproved indication [Unknown]
